FAERS Safety Report 10183020 (Version 2)
Quarter: 2014Q2

REPORT INFORMATION
  Report Type: Spontaneous
  Country: US (occurrence: US)
  Receive Date: 20140520
  Receipt Date: 20140609
  Transmission Date: 20141212
  Serious: No
  Sender: FDA-Public Use
  Company Number: US-009507513-1405USA008246

PATIENT
  Age: 71 Year
  Sex: Female
  Weight: 76.64 kg

DRUGS (6)
  1. OXYTROL FOR WOMEN [Suspect]
     Indication: HYPERTONIC BLADDER
     Dosage: 1 DF, ONCE
     Route: 062
     Dates: start: 20140421, end: 20140425
  2. DEXILANT [Concomitant]
     Indication: IMPAIRED GASTRIC EMPTYING
     Dosage: UNK, UNKNOWN
  3. GABAPENTIN [Concomitant]
     Indication: RESTLESS LEGS SYNDROME
     Dosage: UNK, UNKNOWN
  4. MORPHINE SULFATE [Concomitant]
     Indication: PAIN
     Dosage: UNK, UNKNOWN
  5. METOPROLOL [Concomitant]
     Indication: HEART RATE IRREGULAR
     Dosage: UNK, UNKNOWN
  6. ASACOL [Concomitant]
     Indication: COLITIS ULCERATIVE
     Dosage: UNK, UNKNOWN

REACTIONS (3)
  - Application site rash [Recovered/Resolved]
  - Application site erythema [Recovered/Resolved]
  - Application site pruritus [Recovered/Resolved]
